FAERS Safety Report 10557785 (Version 1)
Quarter: 2014Q4

REPORT INFORMATION
  Report Type: Spontaneous
  Country: US (occurrence: None)
  Receive Date: 20141030
  Receipt Date: 20141030
  Transmission Date: 20150529
  Serious: Yes (Other)
  Sender: FDA-Public Use
  Company Number: None

PATIENT
  Age: 45 Year
  Sex: Male
  Weight: 95.71 kg

DRUGS (6)
  1. METRONIDAZOLE. [Suspect]
     Active Substance: METRONIDAZOLE
     Indication: PEPTIC ULCER
     Route: 048
     Dates: start: 20141022, end: 20141028
  2. CLARITHROMYCIN 500 MG [Suspect]
     Active Substance: CLARITHROMYCIN
     Indication: PEPTIC ULCER
     Route: 048
     Dates: start: 20141022, end: 20141028
  3. AMOXICILLIN. [Concomitant]
     Active Substance: AMOXICILLIN
  4. METRONIDAZOLE. [Suspect]
     Active Substance: METRONIDAZOLE
     Indication: HELICOBACTER GASTRITIS
     Route: 048
     Dates: start: 20141022, end: 20141028
  5. CLARITHROMYCIN 500 MG [Suspect]
     Active Substance: CLARITHROMYCIN
     Indication: HELICOBACTER GASTRITIS
     Route: 048
     Dates: start: 20141022, end: 20141028
  6. OMEPRAZOLE. [Concomitant]
     Active Substance: OMEPRAZOLE

REACTIONS (2)
  - Hypoaesthesia [None]
  - Paraesthesia [None]

NARRATIVE: CASE EVENT DATE: 20141028
